FAERS Safety Report 8096133-1 (Version None)
Quarter: 2012Q1

REPORT INFORMATION
  Report Type: 
  Country: None (occurrence: None)
  Receive Date: 20120131
  Receipt Date: 20120129
  Transmission Date: 20120608
  Serious: Yes (Other)
  Sender: FDA-Public Use
  Company Number: US-GLAXOSMITHKLINE-A0963618A

PATIENT
  Sex: Female

DRUGS (2)
  1. FLOVENT [Suspect]
     Dosage: 220MCG TWICE PER DAY
     Route: 055
  2. UNSPECIFIED MEDICATION [Concomitant]

REACTIONS (10)
  - INHALATION THERAPY [None]
  - BRONCHITIS [None]
  - CANDIDIASIS [None]
  - PNEUMONIA [None]
  - WHEEZING [None]
  - MALAISE [None]
  - COUGH [None]
  - PEAK EXPIRATORY FLOW RATE DECREASED [None]
  - SLEEP DISORDER [None]
  - PRODUCT QUALITY ISSUE [None]
